FAERS Safety Report 7888729-4 (Version None)
Quarter: 2011Q4

REPORT INFORMATION
  Report Type: 
  Country: None (occurrence: None)
  Receive Date: 20111103
  Receipt Date: 20111024
  Transmission Date: 20120403
  Serious: Yes (Death, Hospitalization)
  Sender: FDA-Public Use
  Company Number: US-MYLANLABS-2011S1022145

PATIENT
  Age: 37 Year
  Sex: Female

DRUGS (1)
  1. FENTANYL-100 [Suspect]
     Route: 062
     Dates: end: 20091225

REACTIONS (3)
  - RESPIRATORY RATE DECREASED [None]
  - BLOOD PRESSURE DECREASED [None]
  - TOXICITY TO VARIOUS AGENTS [None]
